FAERS Safety Report 17209511 (Version 1)
Quarter: 2019Q4

REPORT INFORMATION
  Report Type: Spontaneous
  Country: GB (occurrence: GB)
  Receive Date: 20191227
  Receipt Date: 20191227
  Transmission Date: 20200122
  Serious: Yes (Disabling)
  Sender: FDA-Public Use
  Company Number: GB-009507513-1912GBR009685

PATIENT
  Age: 65 Year
  Sex: Male
  Weight: 92 kg

DRUGS (3)
  1. SIMVASTATIN. [Suspect]
     Active Substance: SIMVASTATIN
     Indication: HYPERCHOLESTEROLAEMIA
     Dosage: 20 MILLIGRAM, QD
     Route: 048
     Dates: start: 20161124, end: 20170717
  2. OMEPRAZOLE. [Concomitant]
     Active Substance: OMEPRAZOLE
     Dosage: OCCASIONAL INFREQUENT USE, MAYBE 7 PER MONTH
  3. VIAGRA [Concomitant]
     Active Substance: SILDENAFIL CITRATE
     Dosage: 2.5 MILLIGRAM, PRN (AS NECESSARY)

REACTIONS (7)
  - Peripheral swelling [Unknown]
  - Arthralgia [Unknown]
  - Tendon disorder [Recovered/Resolved with Sequelae]
  - Myalgia [Unknown]
  - Contusion [Unknown]
  - Vascular pain [Unknown]
  - Vein disorder [Unknown]

NARRATIVE: CASE EVENT DATE: 20170717
